FAERS Safety Report 16049471 (Version 1)
Quarter: 2019Q1

REPORT INFORMATION
  Report Type: Report from Study
  Country: US (occurrence: US)
  Receive Date: 20190307
  Receipt Date: 20190307
  Transmission Date: 20190418
  Serious: Yes (Other)
  Sender: FDA-Public Use
  Company Number: US-TEVA-2019-US-1019703

PATIENT
  Age: 41 Year
  Sex: Male

DRUGS (2)
  1. NIVOLUMAB [Suspect]
     Active Substance: NIVOLUMAB
     Indication: SQUAMOUS CELL CARCINOMA OF LUNG
     Dosage: 4 CYCLES
     Route: 065
  2. IBUPROFEN. [Suspect]
     Active Substance: IBUPROFEN
     Dosage: DAILY FOR TWO WEEKS
     Route: 065

REACTIONS (2)
  - Glomerulonephritis rapidly progressive [Recovered/Resolved]
  - Tubulointerstitial nephritis [Recovered/Resolved]
